FAERS Safety Report 9095200 (Version 2)
Quarter: 2013Q1

REPORT INFORMATION
  Report Type: Spontaneous
  Country: DK (occurrence: None)
  Receive Date: 20130122
  Receipt Date: 20130131
  Transmission Date: 20140127
  Serious: Yes (Hospitalization, Other)
  Sender: FDA-Public Use
  Company Number: 1561874

PATIENT
  Age: 75 Year
  Sex: Female
  Weight: 65 kg

DRUGS (10)
  1. EPIRUBICIN HYDROCHLORIDE [Suspect]
     Indication: BREAST CANCER
     Dosage: 1 WEEK
     Route: 041
     Dates: start: 20121114
  2. FLUOROURACIL [Suspect]
     Indication: BREAST CANCER
     Dosage: 1 WEEK
     Route: 041
     Dates: start: 20121114, end: 20121205
  3. PEGFILGRASTIM [Suspect]
     Indication: PRODUCT USED FOR UNKNOWN INDICATION
  4. CYCLOPHOSPHAMIDE [Suspect]
     Indication: BREAST CANCER
     Dosage: 1 WEEK
     Route: 041
     Dates: start: 20121114, end: 20121205
  5. PREDNISOLON [Concomitant]
  6. ONDANSETRON [Concomitant]
  7. (EMEND ?/01627301/) [Concomitant]
  8. (EMPERAL) [Concomitant]
  9. MULTIVITAMINS [Concomitant]
  10. IRON [Concomitant]

REACTIONS (4)
  - Febrile neutropenia [None]
  - Fatigue [None]
  - White blood cell count decreased [None]
  - Platelet count decreased [None]
